FAERS Safety Report 14695146 (Version 1)
Quarter: 2018Q1

REPORT INFORMATION
  Report Type: Spontaneous
  Country: TH (occurrence: TH)
  Receive Date: 20180329
  Receipt Date: 20180329
  Transmission Date: 20180509
  Serious: Yes (Hospitalization, Disabling)
  Sender: FDA-Public Use
  Company Number: TH-SA-2018SA086898

PATIENT
  Age: 7 Year
  Sex: Male

DRUGS (18)
  1. ASPIRIN. [Suspect]
     Active Substance: ASPIRIN
     Indication: ANTIPLATELET THERAPY
     Route: 065
  2. ASPIRIN. [Suspect]
     Active Substance: ASPIRIN
     Indication: ANTIPLATELET THERAPY
     Route: 065
  3. CYCLOPHOSPHAMIDE. [Suspect]
     Active Substance: CYCLOPHOSPHAMIDE
     Indication: POLYARTERITIS NODOSA
     Dosage: 3 DOSES EVERY 2 WEEKS.
     Route: 042
  4. CYCLOPHOSPHAMIDE. [Suspect]
     Active Substance: CYCLOPHOSPHAMIDE
     Indication: POLYARTERITIS NODOSA
     Dosage: 3 DOSES MONTHLY.
     Route: 065
  5. METHYLPREDNISOLONE. [Suspect]
     Active Substance: METHYLPREDNISOLONE
     Indication: POLYARTERITIS NODOSA
     Route: 042
  6. CLOPIDOGREL BISULFATE. [Suspect]
     Active Substance: CLOPIDOGREL BISULFATE
     Indication: ANTIPLATELET THERAPY
     Route: 048
  7. CYCLOPHOSPHAMIDE. [Suspect]
     Active Substance: CYCLOPHOSPHAMIDE
     Indication: IMMUNOSUPPRESSION
     Dosage: 3 DOSES EVERY 2 WEEKS.
     Route: 042
  8. CLOPIDOGREL BISULFATE. [Suspect]
     Active Substance: CLOPIDOGREL BISULFATE
     Indication: ANTIPLATELET THERAPY
     Route: 065
  9. PREDNISOLONE. [Suspect]
     Active Substance: PREDNISOLONE
     Indication: POLYARTERITIS NODOSA
     Dosage: TAPERED
     Route: 048
  10. HEPARIN [Suspect]
     Active Substance: HEPARIN SODIUM
     Indication: ANTICOAGULANT THERAPY
     Dosage: 29 AND 47 U/KG PER HOUR?10 UG/KG/HOUR
     Route: 042
  11. CYCLOPHOSPHAMIDE. [Suspect]
     Active Substance: CYCLOPHOSPHAMIDE
     Indication: POLYARTERITIS NODOSA
     Dosage: 3 DOSES MONTHLY.
     Route: 042
  12. HEPARIN [Suspect]
     Active Substance: HEPARIN SODIUM
     Indication: ANTICOAGULANT THERAPY
     Dosage: 29 AND 47 U/KG PER HOUR
     Route: 042
  13. CYCLOPHOSPHAMIDE. [Suspect]
     Active Substance: CYCLOPHOSPHAMIDE
     Indication: POLYARTERITIS NODOSA
     Dosage: EVERY 2 WEEKS
     Route: 042
  14. CYCLOPHOSPHAMIDE. [Suspect]
     Active Substance: CYCLOPHOSPHAMIDE
     Indication: IMMUNOSUPPRESSION
     Dosage: 3 DOSES MONTHLY.
     Route: 042
  15. METHYLPREDNISOLONE. [Suspect]
     Active Substance: METHYLPREDNISOLONE
     Indication: POLYARTERITIS NODOSA
     Route: 065
  16. CYCLOPHOSPHAMIDE. [Suspect]
     Active Substance: CYCLOPHOSPHAMIDE
     Indication: IMMUNOSUPPRESSION
     Dosage: EVERY 2 WEEKS
     Route: 042
  17. CYCLOPHOSPHAMIDE. [Suspect]
     Active Substance: CYCLOPHOSPHAMIDE
     Indication: IMMUNOSUPPRESSION
     Dosage: 3 DOSES MONTHLY.
     Route: 065
  18. PREDNISOLONE. [Suspect]
     Active Substance: PREDNISOLONE
     Indication: POLYARTERITIS NODOSA
     Dosage: TAPERED
     Route: 048

REACTIONS (7)
  - Condition aggravated [Recovered/Resolved]
  - Mononeuropathy multiplex [Recovered/Resolved]
  - Drug ineffective [Unknown]
  - Gangrene [Recovered/Resolved]
  - Hyperaesthesia [Recovered/Resolved]
  - Ischaemia [Recovered/Resolved]
  - Polyarteritis nodosa [Recovered/Resolved]
